FAERS Safety Report 6267265-5 (Version None)
Quarter: 2009Q3

REPORT INFORMATION
  Report Type: 
  Country: None (occurrence: None)
  Receive Date: 20090714
  Receipt Date: 20090702
  Transmission Date: 20100115
  Serious: Yes (Death)
  Sender: FDA-Public Use
  Company Number: JP-PFIZER INC-2009236073

PATIENT
  Age: 75 Year

DRUGS (11)
  1. ZYVOX [Suspect]
     Indication: CELLULITIS STAPHYLOCOCCAL
     Dosage: FREQUENCY: 2X/DAY,
     Route: 048
     Dates: start: 20090525, end: 20090601
  2. VANCOMYCIN HYDROCHLORIDE [Suspect]
     Indication: CELLULITIS STAPHYLOCOCCAL
     Dosage: FREQUENCY: 2X/DAY,
     Route: 042
     Dates: start: 20090513, end: 20090523
  3. TIENAM [Concomitant]
  4. FOSMICIN [Concomitant]
     Dosage: UNK
     Dates: start: 20090611, end: 20090613
  5. BROTIZOLAM [Concomitant]
     Dates: start: 20090515, end: 20090528
  6. FERROMIA [Concomitant]
     Dates: start: 20090515, end: 20090601
  7. PARIET [Concomitant]
     Dates: start: 20090527, end: 20090602
  8. LOPEMIN [Concomitant]
     Dates: start: 20090601, end: 20090613
  9. LAC B [Concomitant]
     Dates: start: 20090604, end: 20090613
  10. ESPO [Concomitant]
     Dates: start: 20090505
  11. PANTOL [Concomitant]
     Dates: start: 20090609, end: 20090613

REACTIONS (3)
  - CIRCULATORY COLLAPSE [None]
  - DIARRHOEA [None]
  - PSEUDOMEMBRANOUS COLITIS [None]
